FAERS Safety Report 6812804-6 (Version None)
Quarter: 2010Q3

REPORT INFORMATION
  Report Type: 
  Country: None (occurrence: None)
  Receive Date: 20100701
  Receipt Date: 20100622
  Transmission Date: 20110219
  Serious: Yes (Hospitalization)
  Sender: FDA-Public Use
  Company Number: B0662954A

PATIENT
  Sex: Female

DRUGS (1)
  1. AUGMENTIN '125' [Suspect]
     Indication: DENTAL OPERATION
     Dosage: 2TAB PER DAY
     Route: 048
     Dates: start: 20100616, end: 20100616

REACTIONS (2)
  - ERYTHEMA [None]
  - PRURITUS [None]
